FAERS Safety Report 7920751-1 (Version None)
Quarter: 2011Q4

REPORT INFORMATION
  Report Type: 
  Country: None (occurrence: None)
  Receive Date: 20111117
  Receipt Date: 20111110
  Transmission Date: 20120403
  Serious: Yes (Life-Threatening)
  Sender: FDA-Public Use
  Company Number: JP-PFIZER INC-2011268495

PATIENT
  Age: 84 Year
  Sex: Male
  Weight: 48 kg

DRUGS (5)
  1. ZOSYN [Suspect]
     Indication: PNEUMONIA
     Dosage: 4.5 G, 2X/DAY
     Route: 041
     Dates: start: 20111025, end: 20111027
  2. CEFOPERAZONE SODIUM [Suspect]
     Indication: PNEUMONIA
     Dosage: 2 G, UNK
     Route: 041
     Dates: start: 20111021, end: 20111024
  3. WARFARIN SODIUM [Suspect]
     Indication: CEREBRAL INFARCTION
     Dosage: 2-2.25 MG
     Route: 048
     Dates: start: 20111014, end: 20111027
  4. SORBITOL LACTATED RINGER'S SOLUTION [Concomitant]
     Dosage: 1000 ML/DAY
     Route: 041
     Dates: start: 20111017, end: 20111028
  5. ACETAMINOPHEN [Concomitant]
     Dosage: UNK
     Route: 054

REACTIONS (1)
  - INTERNATIONAL NORMALISED RATIO INCREASED [None]
